FAERS Safety Report 11199281 (Version 1)
Quarter: 2015Q2

REPORT INFORMATION
  Report Type: Spontaneous
  Country: US (occurrence: None)
  Receive Date: 20150608
  Receipt Date: 20150608
  Transmission Date: 20150828
  Serious: Yes (Hospitalization)
  Sender: FDA-Public Use
  Company Number: HYP201502-000013

PATIENT
  Age: 39 Year
  Sex: Female

DRUGS (1)
  1. RAVICTI [Suspect]
     Active Substance: GLYCEROL PHENYLBUTYRATE
     Indication: UREA CYCLE ENZYME DEFICIENCY
     Dates: start: 201410, end: 20150201

REACTIONS (1)
  - Hyperammonaemic crisis [None]

NARRATIVE: CASE EVENT DATE: 20150201
